FAERS Safety Report 19834959 (Version 2)
Quarter: 2022Q2

REPORT INFORMATION
  Report Type: Spontaneous
  Country: US (occurrence: US)
  Receive Date: 20210915
  Receipt Date: 20220415
  Transmission Date: 20220720
  Serious: No
  Sender: FDA-Public Use
  Company Number: US-PFIZER INC-202101169567

PATIENT
  Age: 66 Year
  Sex: Female

DRUGS (3)
  1. IBRANCE [Suspect]
     Active Substance: PALBOCICLIB
     Indication: Breast cancer female
     Dosage: 100 MG, DAILY (1 TABLET BY MOUTH DAILY)
     Route: 048
     Dates: start: 20210518
  2. IBRANCE [Suspect]
     Active Substance: PALBOCICLIB
     Dosage: 100 MG, CYCLIC (100MG X 21 DAYS)
     Dates: start: 20210518
  3. IBRANCE [Suspect]
     Active Substance: PALBOCICLIB
     Dosage: 100 MG
     Route: 048
     Dates: start: 20210626

REACTIONS (6)
  - Skin disorder [Unknown]
  - Aphthous ulcer [Not Recovered/Not Resolved]
  - Alopecia [Unknown]
  - Nail disorder [Unknown]
  - Oral herpes [Unknown]
  - Glossodynia [Unknown]
